FAERS Safety Report 18976266 (Version 2)
Quarter: 2021Q1

REPORT INFORMATION
  Report Type: Spontaneous
  Country: GB (occurrence: GB)
  Receive Date: 20210305
  Receipt Date: 20210326
  Transmission Date: 20210420
  Serious: Yes (Life-Threatening, Hospitalization, Other)
  Sender: FDA-Public Use
  Company Number: GB-TEVA-2021-GB-1883312

PATIENT
  Age: 55 Year
  Sex: Female
  Weight: 96.6 kg

DRUGS (3)
  1. BAXTER HEALTHCARE SODIUM CHLORIDE [Suspect]
     Active Substance: SODIUM CHLORIDE
     Indication: MEDICATION DILUTION
     Dosage: FREQUENCY: WEEKLY,277 ML
     Route: 042
     Dates: start: 20201123
  2. PACLITAXEL. [Suspect]
     Active Substance: PACLITAXEL
     Indication: LUNG NEOPLASM MALIGNANT
     Dosage: FREQUENCY: WEEKLY, 162MG
     Route: 042
     Dates: start: 20201123
  3. CARBOPLATIN. [Suspect]
     Active Substance: CARBOPLATIN
     Indication: LUNG NEOPLASM MALIGNANT
     Dosage: FREQUENCY: WEEKLY, 240MG
     Route: 042
     Dates: start: 20201123

REACTIONS (7)
  - Anaphylactic reaction [Recovered/Resolved]
  - Panic reaction [Recovered/Resolved]
  - Disorientation [Recovered/Resolved]
  - Dyspnoea [Recovered/Resolved]
  - Loss of consciousness [Recovered/Resolved]
  - Cough [Recovered/Resolved]
  - Skin discolouration [Recovered/Resolved]

NARRATIVE: CASE EVENT DATE: 20210202
